FAERS Safety Report 25614091 (Version 1)
Quarter: 2025Q3

REPORT INFORMATION
  Report Type: Spontaneous
  Country: CA (occurrence: CA)
  Receive Date: 20250728
  Receipt Date: 20250728
  Transmission Date: 20251020
  Serious: Yes (Other)
  Sender: MERCK SHARP & DOHME LLC
  Company Number: CA-009507513-2311087

PATIENT
  Age: 68 Year
  Sex: Male

DRUGS (1)
  1. KEYTRUDA [Suspect]
     Active Substance: PEMBROLIZUMAB
     Indication: Renal cell carcinoma
     Dosage: DOSE: 182.0 MILLIGRAM FOR I.V. INFUSION. 4 ML SINGLE USE VIAL.
     Route: 042

REACTIONS (3)
  - Renal impairment [Not Recovered/Not Resolved]
  - Product communication issue [Not Recovered/Not Resolved]
  - Discontinued product administered [Not Recovered/Not Resolved]
